FAERS Safety Report 4868843-8 (Version None)
Quarter: 2005Q4

REPORT INFORMATION
  Report Type: 
  Country: None (occurrence: None)
  Receive Date: 20051223
  Receipt Date: 20051212
  Transmission Date: 20060501
  Serious: Yes (Death, Hospitalization)
  Sender: FDA-Public Use
  Company Number: 12854

PATIENT
  Age: 55 Year
  Sex: Male

DRUGS (3)
  1. CARBOPLATIN [Suspect]
  2. PACLITAXEL [Suspect]
     Indication: NON-SMALL CELL LUNG CANCER
  3. DMXAA [Suspect]
     Indication: NON-SMALL CELL LUNG CANCER
     Dosage: 1200 MG, UNK; IV
     Route: 042
     Dates: start: 20050727, end: 20051005

REACTIONS (11)
  - ABDOMINAL PAIN [None]
  - ASTHENIA [None]
  - BIFASCICULAR BLOCK [None]
  - CARDIAC FAILURE [None]
  - GENERAL PHYSICAL HEALTH DETERIORATION [None]
  - HEART RATE INCREASED [None]
  - LEUKOPENIA [None]
  - PNEUMONIA [None]
  - SEPSIS [None]
  - SUBILEUS [None]
  - VOMITING [None]
